FAERS Safety Report 19490775 (Version 3)
Quarter: 2021Q3

REPORT INFORMATION
  Report Type: Spontaneous
  Country: US (occurrence: US)
  Receive Date: 20210705
  Receipt Date: 20210806
  Transmission Date: 20211014
  Serious: No
  Sender: FDA-Public Use
  Company Number: US-SAGE-2021SAGE000066

PATIENT
  Age: 41 Year
  Sex: Female

DRUGS (4)
  1. ZULRESSO [Suspect]
     Active Substance: BREXANOLONE
     Dosage: BAG 4 RAN 12 HRS 30 MINS
     Route: 042
     Dates: end: 20210702
  2. ZULRESSO [Suspect]
     Active Substance: BREXANOLONE
     Dosage: BAG 2 RAN 17 HRS 50 MIN
     Route: 042
  3. ZULRESSO [Suspect]
     Active Substance: BREXANOLONE
     Dosage: BAG 3 RAN 11 HRS 37 MIN
     Route: 042
  4. ZULRESSO [Suspect]
     Active Substance: BREXANOLONE
     Indication: PERINATAL DEPRESSION
     Dosage: BAG 1 RAN 18 HRS 3 MINS
     Route: 042
     Dates: start: 20200630

REACTIONS (1)
  - Medication error [Recovered/Resolved]

NARRATIVE: CASE EVENT DATE: 20200630
